FAERS Safety Report 10884332 (Version 1)
Quarter: 2015Q1

REPORT INFORMATION
  Report Type: Spontaneous
  Country: IT (occurrence: None)
  Receive Date: 20150227
  Receipt Date: 20150227
  Transmission Date: 20150721
  Serious: Yes (Hospitalization)
  Sender: FDA-Public Use
  Company Number: IT-2015TEC0000003

PATIENT
  Age: 46 Year
  Sex: Male

DRUGS (3)
  1. HEPARIN SODIUM INJECTION USP, PRESERVATIVE FREE (HEPARIN SODIUM) INJECTION [Suspect]
     Active Substance: HEPARIN SODIUM
     Indication: HAEMODIALYSIS
  2. WARFARIN (WARFARIN) [Concomitant]
     Active Substance: WARFARIN
  3. ARGATROBAN (ARGATROBAN) (UNKNOWN) (ARGATROBAN) [Concomitant]
     Active Substance: ARGATROBAN

REACTIONS (2)
  - Jugular vein thrombosis [None]
  - Heparin-induced thrombocytopenia [None]
